FAERS Safety Report 5679530-0 (Version None)
Quarter: 2008Q1

REPORT INFORMATION
  Report Type: 
  Country: None (occurrence: None)
  Receive Date: 20080325
  Receipt Date: 20080303
  Transmission Date: 20080703
  Serious: No
  Sender: FDA-Public Use
  Company Number: US-BOEHRINGER INGELHEIM GMBH, GERMANY-2008-BP-03274BP

PATIENT
  Age: 84 Year
  Sex: Male

DRUGS (6)
  1. FLOMAX [Suspect]
     Indication: BENIGN PROSTATIC HYPERPLASIA
     Route: 048
     Dates: start: 20050101
  2. PRESERVISION [Concomitant]
     Indication: MACULAR DEGENERATION
  3. GLUCOSAMINE [Concomitant]
     Indication: BONE DISORDER
  4. GLUCOSAMINE [Concomitant]
     Indication: ARTHROPATHY
  5. ASPIRIN [Concomitant]
     Indication: PROPHYLAXIS
  6. AVODART [Concomitant]
     Indication: PROSTATIC DISORDER

REACTIONS (1)
  - RHINORRHOEA [None]
